FAERS Safety Report 15868098 (Version 1)
Quarter: 2019Q1

REPORT INFORMATION
  Report Type: Report from Study
  Country: CN (occurrence: CN)
  Receive Date: 20190125
  Receipt Date: 20190125
  Transmission Date: 20190417
  Serious: Yes (Death)
  Sender: FDA-Public Use
  Company Number: CN-PFIZER INC-2019032393

PATIENT

DRUGS (3)
  1. ETOPOSIDE. [Suspect]
     Active Substance: ETOPOSIDE
     Indication: ACUTE MYELOID LEUKAEMIA
     Dosage: 70 MG/M2, CYCLIC (ON DAYS 1?5 OR 1?7 VIA INTRAVENOUS INFUSION FOR 2?3 H)
     Route: 042
  2. CYTARABINE. [Suspect]
     Active Substance: CYTARABINE
     Indication: ACUTE MYELOID LEUKAEMIA
     Dosage: 100 MG/M2, CYCLIC (CONTINUOUS INTRAVENOUS INJECTION ON DAYS 1?7)
     Route: 042
  3. HOMOHARRINGTONIN [Suspect]
     Active Substance: OMACETAXINE MEPESUCCINATE
     Indication: ACUTE MYELOID LEUKAEMIA
     Dosage: 4 MG, DAILY (ON DAYS 1?7 AND WAS DIVIDED INTO 2 INTRAVENOUS INFUSIONS FOR 3?4 H EACH)
     Route: 042

REACTIONS (1)
  - Central nervous system haemorrhage [Fatal]
